FAERS Safety Report 21513442 (Version 1)
Quarter: 2022Q4

REPORT INFORMATION
  Report Type: Spontaneous
  Country: US (occurrence: None)
  Receive Date: 20221026
  Receipt Date: 20221026
  Transmission Date: 20230113
  Serious: Yes (Hospitalization)
  Sender: FDA-Public Use
  Company Number: None

PATIENT
  Age: 75 Year
  Sex: Male

DRUGS (1)
  1. LENALIDOMIDE [Suspect]
     Active Substance: LENALIDOMIDE
     Indication: Plasma cell myeloma
     Dosage: FREQUENCY : DAILY;?
     Route: 048
     Dates: start: 20200619

REACTIONS (12)
  - Syncope [None]
  - Diarrhoea [None]
  - Vomiting [None]
  - Haemorrhage [None]
  - Head injury [None]
  - Electrocardiogram QT prolonged [None]
  - Atrioventricular block first degree [None]
  - Electrocardiogram ST segment depression [None]
  - Electrocardiogram T wave inversion [None]
  - Blood creatinine increased [None]
  - Dizziness [None]
  - Balance disorder [None]

NARRATIVE: CASE EVENT DATE: 20221025
